FAERS Safety Report 4815131-1 (Version None)
Quarter: 2005Q4

REPORT INFORMATION
  Report Type: 
  Country: None (occurrence: None)
  Receive Date: 20051026
  Receipt Date: 20051014
  Transmission Date: 20060501
  Serious: Yes (Other)
  Sender: FDA-Public Use
  Company Number: GXKR2005AU01802

PATIENT
  Age: 32 Year
  Sex: Male

DRUGS (2)
  1. CEFTRIAXONE [Suspect]
     Indication: GONORRHOEA
     Dosage: 250 MG, ONCE/SINGLE, INTRAMUSCULAR
     Route: 030
  2. AZITHROMYCIN [Suspect]
     Indication: CHLAMYDIAL INFECTION
     Dosage: 1 G, ONCE/SINGLE, ORAL
     Route: 048

REACTIONS (9)
  - CHILLS [None]
  - EXFOLIATIVE RASH [None]
  - GONORRHOEA [None]
  - HEADACHE [None]
  - JARISCH-HERXHEIMER REACTION [None]
  - MYALGIA [None]
  - PHOTOPHOBIA [None]
  - PYREXIA [None]
  - RASH MACULAR [None]
